FAERS Safety Report 23166563 (Version 1)
Quarter: 2023Q4

REPORT INFORMATION
  Report Type: Spontaneous
  Country: FR (occurrence: FR)
  Receive Date: 20231109
  Receipt Date: 20231109
  Transmission Date: 20240110
  Serious: Yes (Other)
  Sender: FDA-Public Use
  Company Number: None

PATIENT
  Age: 67 Year
  Sex: Female
  Weight: 96 kg

DRUGS (11)
  1. CLINDAMYCIN [Suspect]
     Active Substance: CLINDAMYCIN
     Indication: Medical device site joint infection
     Dosage: UNK
     Route: 048
     Dates: start: 20210722, end: 20211120
  2. PIPERACILLIN SODIUM\TAZOBACTAM SODIUM [Suspect]
     Active Substance: PIPERACILLIN SODIUM\TAZOBACTAM SODIUM
     Dosage: 2G/16G 1X/DAY
     Route: 042
     Dates: start: 20210609, end: 202106
  3. DAPTOMYCIN [Suspect]
     Active Substance: DAPTOMYCIN
     Indication: Medical device site joint infection
     Dosage: 1 G, 1X/DAY
     Route: 042
     Dates: start: 202106, end: 202107
  4. RIFAMPIN SODIUM [Suspect]
     Active Substance: RIFAMPIN SODIUM
     Indication: Medical device site joint infection
     Dosage: 900 MG, 1X/DAY
     Route: 048
     Dates: start: 202106, end: 202107
  5. LEVOFLOXACIN [Suspect]
     Active Substance: LEVOFLOXACIN
     Indication: Medical device site joint infection
     Dosage: 500 MG, 1X/DAY
     Route: 048
     Dates: start: 202106, end: 202107
  6. OFLOXACIN [Suspect]
     Active Substance: OFLOXACIN
     Indication: Medical device site joint infection
     Dosage: 800 MG, 1X/DAY
     Route: 048
     Dates: start: 20210722, end: 20211120
  7. ATORVASTATIN [Concomitant]
     Active Substance: ATORVASTATIN
     Dosage: UNK
  8. GABAPENTIN [Concomitant]
     Active Substance: GABAPENTIN
     Dosage: UNK
  9. METFORMIN\SITAGLIPTIN [Concomitant]
     Active Substance: METFORMIN\SITAGLIPTIN
     Dosage: UNK
  10. DULOXETINE HYDROCHLORIDE [Concomitant]
     Active Substance: DULOXETINE HYDROCHLORIDE
     Dosage: UNK
  11. BUMETANIDE [Concomitant]
     Active Substance: BUMETANIDE
     Dosage: UNK

REACTIONS (5)
  - Asthenia [Not Recovered/Not Resolved]
  - Disturbance in attention [Not Recovered/Not Resolved]
  - Dizziness [Not Recovered/Not Resolved]
  - Insomnia [Not Recovered/Not Resolved]
  - Pain [Not Recovered/Not Resolved]

NARRATIVE: CASE EVENT DATE: 20210615
